FAERS Safety Report 7038454-7 (Version None)
Quarter: 2010Q4

REPORT INFORMATION
  Report Type: 
  Country: None (occurrence: None)
  Receive Date: 20101011
  Receipt Date: 20100322
  Transmission Date: 20110411
  Serious: No
  Sender: FDA-Public Use
  Company Number: US-PFIZER INC-2010037158

PATIENT
  Sex: Female
  Weight: 78.9 kg

DRUGS (3)
  1. GABAPENTIN [Suspect]
     Indication: NEUROPATHY PERIPHERAL
     Dosage: 5400 MG, DAILY
  2. GABAPENTIN [Suspect]
     Indication: BACK PAIN
  3. ACTONEL [Concomitant]
     Dosage: UNK

REACTIONS (3)
  - DRUG EFFECT DECREASED [None]
  - INCORRECT DOSE ADMINISTERED [None]
  - PAIN [None]
